FAERS Safety Report 14681309 (Version 3)
Quarter: 2018Q2

REPORT INFORMATION
  Report Type: Spontaneous
  Country: US (occurrence: US)
  Receive Date: 20180326
  Receipt Date: 20180410
  Transmission Date: 20180711
  Serious: No
  Sender: FDA-Public Use
  Company Number: US-PFIZER INC-2018120692

PATIENT
  Age: 55 Year
  Sex: Male
  Weight: 134 kg

DRUGS (8)
  1. METOPROLOL. [Concomitant]
     Active Substance: METOPROLOL
     Dosage: UNK
  2. INSULIN [Concomitant]
     Active Substance: INSULIN NOS
     Dosage: UNK (INSULIN 70/30)
  3. PROBIOTIC [Concomitant]
     Active Substance: PROBIOTICS NOS
     Dosage: UNK
  4. VALIUM NOVUM [Concomitant]
     Active Substance: DIAZEPAM
     Dosage: UNK, AS NEEDED
  5. LISINOPRIL. [Concomitant]
     Active Substance: LISINOPRIL
     Dosage: UNK
  6. VITAMIN B12 [Concomitant]
     Active Substance: CYANOCOBALAMIN
     Dosage: UNK
  7. VITAMIN C [Concomitant]
     Active Substance: ASCORBIC ACID
     Dosage: UNK
  8. SUTENT [Suspect]
     Active Substance: SUNITINIB MALATE
     Indication: RENAL CANCER STAGE IV
     Dosage: 50 MG, CYCLIC (DAILY FOR 2 WEEKS ON / 1 WEEK OFF)
     Dates: start: 20180320, end: 2018

REACTIONS (8)
  - Buccal mucosal roughening [Unknown]
  - Blood glucose decreased [Not Recovered/Not Resolved]
  - Nausea [Unknown]
  - Oropharyngeal pain [Unknown]
  - Dizziness [Unknown]
  - Abdominal discomfort [Unknown]
  - Somnolence [Unknown]
  - Nervousness [Unknown]

NARRATIVE: CASE EVENT DATE: 201803
